FAERS Safety Report 8275909-1 (Version None)
Quarter: 2012Q2

REPORT INFORMATION
  Report Type: 
  Country: None (occurrence: None)
  Receive Date: 20120412
  Receipt Date: 20120409
  Transmission Date: 20120825
  Serious: Yes (Other)
  Sender: FDA-Public Use
  Company Number: US-PFIZER INC-2012088628

PATIENT
  Sex: Male
  Weight: 133.79 kg

DRUGS (5)
  1. CHANTIX [Suspect]
     Indication: SMOKING CESSATION THERAPY
     Dosage: 0.5 MG, 1X/DAY
     Route: 048
     Dates: start: 20120301
  2. MOTRIN [Concomitant]
     Indication: OEDEMA PERIPHERAL
     Dosage: UNK
  3. MOTRIN [Concomitant]
     Indication: PAIN
  4. CHANTIX [Suspect]
     Dosage: 1 MG, 2X/DAY
     Route: 048
  5. OMEPRAZOLE [Concomitant]
     Indication: GASTROOESOPHAGEAL REFLUX DISEASE
     Dosage: UNK

REACTIONS (5)
  - FATIGUE [None]
  - SOMNOLENCE [None]
  - IRRITABILITY [None]
  - ANGER [None]
  - AGGRESSION [None]
